FAERS Safety Report 10903182 (Version 1)
Quarter: 2015Q1

REPORT INFORMATION
  Report Type: Spontaneous
  Country: HU (occurrence: HU)
  Receive Date: 20150311
  Receipt Date: 20150311
  Transmission Date: 20150721
  Serious: Yes (Death)
  Sender: FDA-Public Use
  Company Number: HU-ROCHE-1550155

PATIENT
  Sex: Female

DRUGS (5)
  1. IMURAN [Concomitant]
     Active Substance: AZATHIOPRINE
     Indication: GRANULOMATOSIS WITH POLYANGIITIS
     Route: 065
  2. ATORIS [Concomitant]
     Active Substance: ATORVASTATIN CALCIUM
     Route: 065
  3. MABTHERA [Suspect]
     Active Substance: RITUXIMAB
     Indication: GRANULOMATOSIS WITH POLYANGIITIS
     Route: 042
     Dates: start: 20150210
  4. ENAP [Concomitant]
     Active Substance: ENALAPRIL
     Route: 065
  5. ENAP [Concomitant]
     Active Substance: ENALAPRIL
     Route: 065

REACTIONS (2)
  - Loss of consciousness [Unknown]
  - Sudden death [Fatal]
